FAERS Safety Report 19373175 (Version 1)
Quarter: 2021Q2

REPORT INFORMATION
  Report Type: Spontaneous
  Country: SG (occurrence: SG)
  Receive Date: 20210604
  Receipt Date: 20210604
  Transmission Date: 20210717
  Serious: Yes (Other)
  Sender: FDA-Public Use
  Company Number: NVSC2020SG090402

PATIENT
  Age: 50 Year
  Sex: Female

DRUGS (2)
  1. MEKINIST [Suspect]
     Active Substance: TRAMETINIB DIMETHYL SULFOXIDE
     Indication: COLORECTAL CANCER
     Dosage: UNK
     Route: 065
     Dates: start: 20190801, end: 20200301
  2. TAFINLAR [Suspect]
     Active Substance: DABRAFENIB MESYLATE
     Indication: COLORECTAL CANCER
     Dosage: 75 MG, QD
     Route: 048
     Dates: start: 20190801, end: 20200301

REACTIONS (4)
  - Therapy non-responder [Not Recovered/Not Resolved]
  - Off label use [Unknown]
  - Malignant neoplasm progression [Not Recovered/Not Resolved]
  - Colorectal cancer [Not Recovered/Not Resolved]

NARRATIVE: CASE EVENT DATE: 201908
